FAERS Safety Report 8537814-2 (Version None)
Quarter: 2012Q3

REPORT INFORMATION
  Report Type: 
  Country: None (occurrence: None)
  Receive Date: 20120725
  Receipt Date: 20120514
  Transmission Date: 20120928
  Serious: Yes (Hospitalization)
  Sender: FDA-Public Use
  Company Number: NL-BAXTER-2012BAX006181

PATIENT
  Age: 59 Year
  Sex: Female

DRUGS (8)
  1. PHYSIOSOL IN PLASTIC CONTAINER [Suspect]
     Route: 033
     Dates: start: 20071217
  2. EXTRANEAL [Suspect]
     Route: 033
     Dates: start: 20071217
  3. PHYSIOSOL IN PLASTIC CONTAINER [Suspect]
  4. NUTRINEAL [Suspect]
  5. EPOGEN [Concomitant]
  6. PHYSIOSOL IN PLASTIC CONTAINER [Suspect]
  7. NUTRINEAL [Suspect]
     Route: 030
     Dates: start: 20071217
  8. PHYSIOSOL IN PLASTIC CONTAINER [Suspect]
     Route: 033
     Dates: start: 20071217

REACTIONS (1)
  - PERICARDITIS URAEMIC [None]
